FAERS Safety Report 14965465 (Version 3)
Quarter: 2018Q4

REPORT INFORMATION
  Report Type: Spontaneous
  Country: FR (occurrence: FR)
  Receive Date: 20180601
  Receipt Date: 20181205
  Transmission Date: 20190204
  Serious: Yes (Life-Threatening, Hospitalization)
  Sender: FDA-Public Use
  Company Number: FR-ANIPHARMA-2018-FR-000061

PATIENT
  Age: 66 Year
  Sex: Male
  Weight: 130 kg

DRUGS (18)
  1. DUOTRAV [Concomitant]
     Active Substance: TIMOLOL MALEATE\TRAVOPROST
     Dosage: ONE DROP A DAY IN THE RIGHT EYE
  2. ATACAND [Suspect]
     Active Substance: CANDESARTAN CILEXETIL
     Route: 065
  3. CANDESARTAN HCT [Suspect]
     Active Substance: CANDESARTAN CILEXETIL\HYDROCHLOROTHIAZIDE
     Indication: PRODUCT USED FOR UNKNOWN INDICATION
     Dosage: 16MG DAILY
     Route: 048
  4. INSULIN [Concomitant]
     Active Substance: INSULIN NOS
     Dosage: 1 DF DAILY
     Route: 058
  5. INEXIUM [Concomitant]
     Active Substance: ESOMEPRAZOLE
     Route: 065
  6. COSOPT [Concomitant]
     Active Substance: DORZOLAMIDE HYDROCHLORIDE\TIMOLOL MALEATE
     Dosage: ONE DROP A DAY IN THE RIGHT EYE
  7. ETANERCEPT [Suspect]
     Active Substance: ETANERCEPT
     Dosage: 1 DF BIWK
     Route: 058
     Dates: start: 201305, end: 20160216
  8. METFORMIN [Concomitant]
     Active Substance: METFORMIN HYDROCHLORIDE
     Dosage: 100MG TID
     Route: 048
  9. MOPRAL [Concomitant]
     Active Substance: OMEPRAZOLE
     Dosage: 40MG DAILY
     Route: 048
  10. STELARA [Suspect]
     Active Substance: USTEKINUMAB
     Dosage: 1 DF ONCE EVERY 12 WEEKS
     Route: 058
     Dates: start: 20160216, end: 201804
  11. LASILIX [Suspect]
     Active Substance: FUROSEMIDE
     Dosage: 250MG/25ML 1DF A DAY
     Route: 065
  12. PARACETAMOL [Concomitant]
     Active Substance: ACETAMINOPHEN
     Dosage: 1G QID
     Route: 048
  13. DAIVOBET [Concomitant]
     Active Substance: BETAMETHASONE DIPROPIONATE\CALCIPOTRIENE
     Dosage: 1 DF APPLICATION A DAY
     Route: 065
  14. COUMADINE [Concomitant]
     Active Substance: WARFARIN SODIUM
     Dosage: 4MG DAILY
     Route: 048
  15. AMLOR [Concomitant]
     Active Substance: AMLODIPINE BESYLATE
     Dosage: 5MG DAILY
     Route: 048
  16. AERIUS (DESLORATADINE) [Concomitant]
     Active Substance: DESLORATADINE
     Dosage: 5MG DAILY
     Route: 048
  17. LAMISIL [Concomitant]
     Active Substance: TERBINAFINE HYDROCHLORIDE
     Route: 065
  18. FORLAX [Concomitant]
     Active Substance: POLYETHYLENE GLYCOL 4000
     Route: 065

REACTIONS (6)
  - Gastrointestinal angiodysplasia [Not Recovered/Not Resolved]
  - Cardiac failure [Not Recovered/Not Resolved]
  - Iron deficiency anaemia [Recovering/Resolving]
  - Hepatocellular carcinoma [Recovered/Resolved]
  - Blood creatine increased [Recovered/Resolved]
  - Pneumonia [Recovered/Resolved]

NARRATIVE: CASE EVENT DATE: 20160325
